FAERS Safety Report 20030371 (Version 2)
Quarter: 2021Q4

REPORT INFORMATION
  Report Type: Report from Study
  Country: EE (occurrence: EE)
  Receive Date: 20211103
  Receipt Date: 20211109
  Transmission Date: 20220303
  Serious: Yes (Hospitalization, Other)
  Sender: FDA-Public Use
  Company Number: EE-ABBVIE-21K-221-4145258-00

PATIENT
  Age: 47 Year
  Sex: Male
  Weight: 62.7 kg

DRUGS (3)
  1. CARBIDOPA\LEVODOPA [Suspect]
     Active Substance: CARBIDOPA\LEVODOPA
     Indication: Parkinson^s disease
     Dosage: MORN. 1ML CONT.2,8 ML/H EXTRA 2,0 ML
     Route: 050
     Dates: start: 20201229, end: 20210924
  2. CARBIDOPA\LEVODOPA [Suspect]
     Active Substance: CARBIDOPA\LEVODOPA
     Dosage: MORN. 1ML CONT.2,0 ML/H EXTRA 2,0 ML
     Route: 050
     Dates: start: 20210926
  3. OXYCODONE [Concomitant]
     Active Substance: OXYCODONE
     Indication: Procedural pain
     Dosage: CONTINUOUS
     Route: 042
     Dates: start: 20210924

REACTIONS (3)
  - Scoliosis [Recovered/Resolved]
  - Dyskinesia [Recovered/Resolved]
  - Gastritis [Unknown]

NARRATIVE: CASE EVENT DATE: 20210924
